FAERS Safety Report 8029921-8 (Version None)
Quarter: 2012Q1

REPORT INFORMATION
  Report Type: 
  Country: None (occurrence: None)
  Receive Date: 20120109
  Receipt Date: 20120105
  Transmission Date: 20120608
  Serious: Yes (Hospitalization)
  Sender: FDA-Public Use
  Company Number: US-B.I. PHARMACEUTICALS,INC./RIDGEFIELD-2011-BP-24395BP

PATIENT
  Sex: Male

DRUGS (9)
  1. ADVAIR DISKUS 100/50 [Concomitant]
     Indication: ASTHMA
     Route: 055
  2. METOPROLOL SUCCINATE [Concomitant]
     Indication: ATRIAL FIBRILLATION
     Dosage: 25 UNK
     Route: 048
  3. PLAVIX [Concomitant]
     Indication: CARDIAC DISORDER
     Route: 048
  4. LISINOPRIL [Concomitant]
     Indication: CARDIAC DISORDER
     Route: 048
  5. DILTIAZEM HCL [Concomitant]
     Indication: ATRIAL FIBRILLATION
     Route: 048
  6. ASPIRIN [Concomitant]
     Indication: CARDIAC DISORDER
     Route: 048
  7. LOPID [Concomitant]
     Indication: CARDIAC DISORDER
  8. PRADAXA [Suspect]
     Indication: ATRIAL FIBRILLATION
     Dates: start: 20110101, end: 20110904
  9. INSULIN [Concomitant]
     Indication: DIABETES MELLITUS
     Route: 058

REACTIONS (5)
  - GINGIVAL BLEEDING [None]
  - GASTROINTESTINAL HAEMORRHAGE [None]
  - LOSS OF CONSCIOUSNESS [None]
  - HAEMORRHAGE [None]
  - OEDEMA PERIPHERAL [None]
